FAERS Safety Report 21871205 (Version 1)
Quarter: 2023Q1

REPORT INFORMATION
  Report Type: Spontaneous
  Country: CA (occurrence: CA)
  Receive Date: 20230117
  Receipt Date: 20230117
  Transmission Date: 20230418
  Serious: Yes (Hospitalization)
  Sender: FDA-Public Use
  Company Number: CA-VIIV HEALTHCARE LIMITED-CA2023002554

PATIENT
  Age: 45 Year
  Sex: Male

DRUGS (2)
  1. RILPIVIRINE [Suspect]
     Active Substance: RILPIVIRINE
     Indication: HIV infection
     Dosage: 3 ML, Z 600MG/3ML CABOTEGRAVIR, 900MG/3ML RILPIVIRINE, EVERY 2 MONTHS
     Route: 030
     Dates: start: 20220830
  2. CABOTEGRAVIR [Suspect]
     Active Substance: CABOTEGRAVIR
     Indication: HIV infection
     Dosage: 3 ML, Z 600MG/3ML CABOTEGRAVIR, 900MG/3ML RILPIVIRINE, EVERY 2 MONTHS
     Route: 030
     Dates: start: 20220830

REACTIONS (1)
  - Hospitalisation [Unknown]
